FAERS Safety Report 4893411-1 (Version None)
Quarter: 2006Q1

REPORT INFORMATION
  Report Type: 
  Country: None (occurrence: None)
  Receive Date: 20060127
  Receipt Date: 20051001
  Transmission Date: 20060701
  Serious: Yes (Disabling)
  Sender: FDA-Public Use
  Company Number: 200518883GDDC

PATIENT
  Age: 52 Year
  Sex: Female
  Weight: 60 kg

DRUGS (6)
  1. ARAVA [Suspect]
     Indication: RHEUMATOID ARTHRITIS
     Route: 048
     Dates: start: 20050608, end: 20050911
  2. CELEBREX [Concomitant]
     Indication: POLYARTHRITIS
     Route: 048
     Dates: start: 20040207
  3. CELEBREX [Concomitant]
     Indication: RHEUMATOID ARTHRITIS
     Route: 048
     Dates: start: 20040207
  4. PARACETAMOL [Concomitant]
     Route: 048
     Dates: start: 20031206
  5. MEDROL [Concomitant]
     Dates: start: 20050605
  6. IDEOS [Concomitant]
     Route: 048
     Dates: start: 20040605

REACTIONS (2)
  - CYTOLYTIC HEPATITIS [None]
  - HEPATOCELLULAR DAMAGE [None]
